FAERS Safety Report 7590173-4 (Version None)
Quarter: 2011Q3

REPORT INFORMATION
  Report Type: 
  Country: None (occurrence: None)
  Receive Date: 20110705
  Receipt Date: 20110621
  Transmission Date: 20111222
  Serious: Yes (Other)
  Sender: FDA-Public Use
  Company Number: FR-WATSON-2011-09823

PATIENT
  Age: 25 Year
  Sex: Male

DRUGS (4)
  1. TERBUTALINE [Suspect]
     Indication: PRODUCT USED FOR UNKNOWN INDICATION
  2. ENTOCORT EC [Suspect]
     Indication: PRODUCT USED FOR UNKNOWN INDICATION
  3. FORMOTEROL FUMARATE [Suspect]
     Indication: PRODUCT USED FOR UNKNOWN INDICATION
  4. TRIAMCINOLONE [Suspect]
     Indication: PRODUCT USED FOR UNKNOWN INDICATION

REACTIONS (2)
  - INSOMNIA [None]
  - AGGRESSION [None]
